FAERS Safety Report 9174751 (Version 1)
Quarter: 2013Q1

REPORT INFORMATION
  Report Type: Spontaneous
  Country: US (occurrence: None)
  Receive Date: 20130318
  Receipt Date: 20130318
  Transmission Date: 20140127
  Serious: Yes (Other)
  Sender: FDA-Public Use
  Company Number: FK201300788

PATIENT
  Age: 24 Year
  Sex: Female

DRUGS (9)
  1. MORPHINE [Suspect]
     Indication: ABDOMINAL PAIN
  2. HYDROCODONE/ACETAMINOPHEN [Suspect]
     Indication: PAIN
  3. CLONAZEPAM (CLONAZEPAM) (CLONAZEPAM) [Concomitant]
  4. LORAZEPAM (LORAZEPAM) [Concomitant]
  5. DIPHENOXYLATE/ATROPINE (LOMOTIL /00034001/) [Concomitant]
  6. SERTRALINE (SERTRALINE) (SERTRALINE) [Concomitant]
  7. FENOFIBRATE (FENOFIBRATE) (FENOFIBRATE) [Concomitant]
  8. METOPROLOL (METOPROLOL) [Concomitant]
  9. LEVOTHYROXINE (LEVOTHYROXINE) [Concomitant]

REACTIONS (7)
  - Narcotic bowel syndrome [None]
  - Nausea [None]
  - Diarrhoea [None]
  - Asthenia [None]
  - Blood pressure increased [None]
  - Depression [None]
  - Tachycardia [None]
